FAERS Safety Report 20305042 (Version 1)
Quarter: 2022Q1

REPORT INFORMATION
  Report Type: Spontaneous
  Country: US (occurrence: None)
  Receive Date: 20220106
  Receipt Date: 20220106
  Transmission Date: 20220423
  Serious: No
  Sender: FDA-Public Use
  Company Number: 2021A896271

PATIENT
  Age: 21896 Day
  Sex: Male
  Weight: 95.3 kg

DRUGS (1)
  1. PULMICORT FLEXHALER [Suspect]
     Active Substance: BUDESONIDE
     Indication: COVID-19
     Dosage: ONE PUFF TWICE A DAY
     Route: 055
     Dates: start: 20211220

REACTIONS (5)
  - Anxiety [Not Recovered/Not Resolved]
  - Device use issue [Unknown]
  - Wrong technique in device usage process [Unknown]
  - Device mechanical issue [Unknown]
  - Device malfunction [Unknown]

NARRATIVE: CASE EVENT DATE: 20211220
